FAERS Safety Report 13188963 (Version 1)
Quarter: 2017Q1

REPORT INFORMATION
  Report Type: Spontaneous
  Country: US (occurrence: US)
  Receive Date: 20170203
  Receipt Date: 20170203
  Transmission Date: 20170428
  Serious: Yes (Life-Threatening, Hospitalization)
  Sender: FDA-Public Use
  Company Number: None

PATIENT
  Age: 77 Year
  Sex: Male
  Weight: 109.7 kg

DRUGS (2)
  1. WARFARIN [Suspect]
     Active Substance: WARFARIN
     Indication: ATRIAL FIBRILLATION
     Route: 048
     Dates: start: 20091218, end: 20161017
  2. CLOPIDOGREL [Suspect]
     Active Substance: CLOPIDOGREL BISULFATE
     Indication: CORONARY ARTERIAL STENT INSERTION
     Route: 048
     Dates: start: 20160926

REACTIONS (7)
  - Oesophagitis [None]
  - Melaena [None]
  - Hypotension [None]
  - Gastrointestinal ulcer [None]
  - Fatigue [None]
  - Asthenia [None]
  - Gastric haemorrhage [None]

NARRATIVE: CASE EVENT DATE: 20161017
